FAERS Safety Report 9921752 (Version 2)
Quarter: 2014Q1

REPORT INFORMATION
  Report Type: Report from Study
  Country: US (occurrence: US)
  Receive Date: 20140225
  Receipt Date: 20140317
  Transmission Date: 20141002
  Serious: Yes (Other)
  Sender: FDA-Public Use
  Company Number: US-ASTELLAS-2014EU001635

PATIENT
  Age: 63 Year
  Sex: Male
  Weight: 113 kg

DRUGS (9)
  1. BLINDED ENZALUTAMIDE [Suspect]
     Indication: PROSTATE CANCER
     Dosage: UNK
     Route: 048
     Dates: start: 20130311, end: 20140214
  2. CALCIUM [Concomitant]
     Indication: MINERAL SUPPLEMENTATION
     Dosage: 600 MG, UID/QD
     Route: 048
     Dates: start: 20121004
  3. VITAMIN D                          /00107901/ [Concomitant]
     Indication: VITAMIN SUPPLEMENTATION
     Dosage: 400 MG, UID/QD
     Route: 048
     Dates: start: 20121004
  4. ASPIRIN [Concomitant]
     Indication: PROPHYLAXIS
     Dosage: 81 MG, UID/QD
     Route: 048
     Dates: start: 20121004
  5. DENOSUMAB [Concomitant]
     Indication: PROPHYLAXIS
     Dosage: 120 MG, 1 IN 3 M
     Route: 058
     Dates: start: 20130307
  6. HYDROCHLOROTHIAZIDE [Concomitant]
     Indication: HYPERTENSION
     Dosage: 50 MG, UID/QD
     Route: 048
     Dates: start: 20130722
  7. NIFEDIPINE [Concomitant]
     Indication: HYPERTENSION
     Dosage: 30 MG, UID/QD
     Route: 048
     Dates: start: 20131110, end: 20140205
  8. METOPROLOL [Concomitant]
     Indication: HYPERTENSION
     Dosage: 25 MG, UID/QD
     Route: 048
     Dates: start: 20131110
  9. LUPRON [Concomitant]
     Indication: PROSTATE CANCER
     Dosage: 22.8 MG, 1 IN 3 M
     Route: 030

REACTIONS (1)
  - Hepatitis B [Not Recovered/Not Resolved]
